FAERS Safety Report 26143795 (Version 1)
Quarter: 2025Q4

REPORT INFORMATION
  Report Type: Spontaneous
  Country: US (occurrence: US)
  Receive Date: 20251211
  Receipt Date: 20251211
  Transmission Date: 20260118
  Serious: Yes (Hospitalization)
  Sender: ABBVIE
  Company Number: US-ABBVIE-6581372

PATIENT
  Age: 35 Year
  Sex: Female
  Weight: 90.264 kg

DRUGS (12)
  1. SKYRIZI [Suspect]
     Active Substance: RISANKIZUMAB-RZAA
     Indication: Crohn^s disease
     Dosage: SOLUTION FOR INJECTION IN PRE-FILLED INJECTOR  FORM STRENGTH: 360  MG
     Route: 058
     Dates: start: 202501
  2. SKYRIZI [Suspect]
     Active Substance: RISANKIZUMAB-RZAA
     Dosage: SOLUTION FOR INJECTION IN PRE-FILLED INJECTOR? FORM STRENGTH: 360  MG
     Route: 058
     Dates: start: 202404, end: 202501
  3. ALLOPURINOL [Concomitant]
     Active Substance: ALLOPURINOL
     Indication: Crohn^s disease
     Dosage: FORM STRENGTH: 100 MG
     Route: 048
  4. AZATHIOPRINE [Concomitant]
     Active Substance: AZATHIOPRINE
     Indication: Crohn^s disease
     Dosage: FORM STRENGTH: 50 MG
     Route: 048
  5. ENOXAPARIN [Suspect]
     Active Substance: ENOXAPARIN
     Indication: Anticoagulant therapy
     Dosage: SOLUTION FOR INFUSION IN PRE-FILLED SYRINGE FORM STRENGTH: 100 MG
     Route: 058
     Dates: start: 2010, end: 20250909
  6. ENOXAPARIN [Suspect]
     Active Substance: ENOXAPARIN
     Indication: Anticoagulant therapy
     Dosage: SOLUTION FOR INFUSION IN PRE-FILLED SYRINGE FORM STRENGTH: 100 MG
     Route: 058
     Dates: start: 20250909
  7. ALPRAZOLAM [Concomitant]
     Active Substance: ALPRAZOLAM
     Indication: Anxiety
     Dosage: FORM STRENGTH: 0.5 MG?FREQUENCY TEXT: EVERY 8 HOURS AS NEEDED
  8. ESCITALOPRAM [Concomitant]
     Active Substance: ESCITALOPRAM OXALATE
     Indication: Anxiety
     Dosage: FORM STRENGTH: 20 MG
  9. DICYCLOMINE [Concomitant]
     Active Substance: DICYCLOMINE HYDROCHLORIDE
     Indication: Crohn^s disease
     Dosage: TIME INTERVAL: 0.33333333 DAYS: FORM STRENGTH: 10 MG
     Route: 048
  10. PREDNISONE [Suspect]
     Active Substance: PREDNISONE
     Indication: Crohn^s disease
     Dosage: FORM STRENGTH: 9 MG
     Route: 048
     Dates: start: 2012
  11. TRAZODONE [Concomitant]
     Active Substance: TRAZODONE HYDROCHLORIDE
     Indication: Anxiety
     Dosage: TIME INTERVAL: 0.33333333 DAYS: FORM STRENGTH: 50 MG
  12. SKYRIZI [Suspect]
     Active Substance: RISANKIZUMAB-RZAA
     Indication: Crohn^s disease
     Dosage: FORM STRENGTH 600 MG
     Route: 042
     Dates: start: 202312, end: 202403

REACTIONS (5)
  - Type 2 diabetes mellitus [Not Recovered/Not Resolved]
  - Device issue [Not Recovered/Not Resolved]
  - Abdominal pain [Recovered/Resolved]
  - Thrombosis [Unknown]
  - Injection site haemorrhage [Recovered/Resolved]

NARRATIVE: CASE EVENT DATE: 20250907
